FAERS Safety Report 5573383-7 (Version None)
Quarter: 2007Q4

REPORT INFORMATION
  Report Type: 
  Country: None (occurrence: None)
  Receive Date: 20071220
  Receipt Date: 20071220
  Transmission Date: 20080405
  Serious: Yes (Hospitalization)
  Sender: FDA-Public Use
  Company Number: None

PATIENT
  Age: 79 Year
  Sex: Male

DRUGS (1)
  1. OXYCODONE HCL [Suspect]
     Dates: start: 20071001

REACTIONS (5)
  - ASTHENIA [None]
  - HALLUCINATION [None]
  - MENTAL STATUS CHANGES [None]
  - SOMNOLENCE [None]
  - UNRESPONSIVE TO STIMULI [None]
